FAERS Safety Report 6952052-2 (Version None)
Quarter: 2010Q3

REPORT INFORMATION
  Report Type: 
  Country: None (occurrence: None)
  Receive Date: 20100829
  Receipt Date: 20100420
  Transmission Date: 20110219
  Serious: No
  Sender: FDA-Public Use
  Company Number: US-ABBOTT-10P-163-0640731-00

PATIENT
  Sex: Male

DRUGS (12)
  1. NIASPAN [Suspect]
     Indication: BLOOD CHOLESTEROL INCREASED
     Dates: start: 20091201, end: 20091201
  2. FENOFIBRATE [Concomitant]
     Indication: BLOOD CHOLESTEROL INCREASED
     Dates: start: 20080101
  3. ACTOS [Concomitant]
     Indication: DIABETES MELLITUS
  4. PRANDIN [Concomitant]
     Indication: DIABETES MELLITUS
  5. POTASSIUM [Concomitant]
     Indication: HYPERKALAEMIA
  6. METOPROLOL [Concomitant]
     Indication: HYPERTENSION
  7. ZETIA [Concomitant]
     Indication: HYPERLIPIDAEMIA
  8. ALLOPURINOL [Concomitant]
     Indication: PRODUCT USED FOR UNKNOWN INDICATION
  9. PRILOSEC [Concomitant]
     Indication: GASTROOESOPHAGEAL REFLUX DISEASE
  10. CRESTOR [Concomitant]
     Indication: HYPERLIPIDAEMIA
  11. LASIX [Concomitant]
     Indication: PRODUCT USED FOR UNKNOWN INDICATION
  12. WARFARIN SODIUM [Concomitant]
     Indication: ATRIAL FIBRILLATION

REACTIONS (3)
  - BLOOD CREATININE INCREASED [None]
  - FLUSHING [None]
  - HYPERSENSITIVITY [None]
